FAERS Safety Report 12326198 (Version 1)
Quarter: 2016Q2

REPORT INFORMATION
  Report Type: Spontaneous
  Country: US (occurrence: US)
  Receive Date: 20160503
  Receipt Date: 20160503
  Transmission Date: 20160815
  Serious: Yes (Other)
  Sender: FDA-Public Use
  Company Number: US-ACCORD-040006

PATIENT
  Sex: Female

DRUGS (3)
  1. MYCOPHENOLIC ACID. [Suspect]
     Active Substance: MYCOPHENOLIC ACID
     Indication: MORPHOEA
     Dosage: 850 MG/M^2/DAY
  2. FOLIC ACID. [Concomitant]
     Active Substance: FOLIC ACID
  3. METHOTREXATE [Suspect]
     Active Substance: METHOTREXATE
     Indication: MORPHOEA

REACTIONS (4)
  - Anhedonia [Recovered/Resolved]
  - Off label use [Unknown]
  - Mood altered [Recovered/Resolved]
  - Psychiatric symptom [Recovered/Resolved]
